FAERS Safety Report 23302066 (Version 1)
Quarter: 2023Q4

REPORT INFORMATION
  Report Type: Spontaneous
  Country: CN (occurrence: CN)
  Receive Date: 20231215
  Receipt Date: 20231215
  Transmission Date: 20240110
  Serious: Yes (Hospitalization, Other)
  Sender: FDA-Public Use
  Company Number: CN-009507513-2312CHN004103

PATIENT
  Age: 61 Year
  Sex: Male
  Weight: 47 kg

DRUGS (12)
  1. KEYTRUDA [Suspect]
     Active Substance: PEMBROLIZUMAB
     Indication: Lung neoplasm malignant
     Dosage: 200 MG, EVERY 21 DAYS (Q3W)
     Route: 042
     Dates: start: 20230726, end: 20230726
  2. KEYTRUDA [Suspect]
     Active Substance: PEMBROLIZUMAB
     Dosage: 200 MG, EVERY 21 DAYS (Q3W)
     Route: 042
     Dates: start: 20230817, end: 20230817
  3. KEYTRUDA [Suspect]
     Active Substance: PEMBROLIZUMAB
     Dosage: 200 MG, EVERY 21 DAYS (Q3W)
     Route: 042
     Dates: start: 20230908, end: 20230908
  4. KEYTRUDA [Suspect]
     Active Substance: PEMBROLIZUMAB
     Dosage: 200 MG, EVERY 21 DAYS (Q3W)
     Route: 042
     Dates: start: 20230929, end: 20230929
  5. CARBOPLATIN [Suspect]
     Active Substance: CARBOPLATIN
     Indication: Lung neoplasm malignant
     Dosage: 420 MG, EVERY 21 DAYS (Q3W)
     Route: 041
     Dates: start: 20230726, end: 20230726
  6. CARBOPLATIN [Suspect]
     Active Substance: CARBOPLATIN
     Dosage: 420 MG, EVERY 21 DAYS (Q3W)
     Route: 041
     Dates: start: 20230817, end: 20230817
  7. CARBOPLATIN [Suspect]
     Active Substance: CARBOPLATIN
     Dosage: 420 MG, EVERY 21 DAYS (Q3W)
     Route: 041
     Dates: start: 20230908, end: 20230908
  8. CARBOPLATIN [Suspect]
     Active Substance: CARBOPLATIN
     Dosage: 420 MG, EVERY 21 DAYS (Q3W)
     Route: 041
     Dates: start: 20230929, end: 20230929
  9. PEMETREXED DISODIUM [Concomitant]
     Active Substance: PEMETREXED DISODIUM
     Indication: Lung neoplasm malignant
     Dosage: 600 MG, EVERY 21 DAYS (Q3W)
     Route: 041
     Dates: start: 20230726, end: 20230726
  10. PEMETREXED DISODIUM [Concomitant]
     Active Substance: PEMETREXED DISODIUM
     Dosage: 600 MG, EVERY 21 DAYS (Q3W)
     Route: 041
     Dates: start: 20230817, end: 20230817
  11. PEMETREXED DISODIUM [Concomitant]
     Active Substance: PEMETREXED DISODIUM
     Dosage: 600 MG, EVERY 21 DAYS (Q3W)
     Route: 041
     Dates: start: 20230908, end: 20230908
  12. PEMETREXED DISODIUM [Concomitant]
     Active Substance: PEMETREXED DISODIUM
     Dosage: 600 MG, EVERY 21 DAYS (Q3W)
     Route: 041
     Dates: start: 20230929, end: 20230929

REACTIONS (5)
  - Blood creatinine increased [Recovering/Resolving]
  - Pneumonia [Recovering/Resolving]
  - Renal failure [Unknown]
  - Inappropriate schedule of product administration [Unknown]
  - Inappropriate schedule of product administration [Unknown]

NARRATIVE: CASE EVENT DATE: 20230817
